FAERS Safety Report 16962290 (Version 1)
Quarter: 2019Q4

REPORT INFORMATION
  Report Type: Spontaneous
  Country: CN (occurrence: CN)
  Receive Date: 20191025
  Receipt Date: 20191025
  Transmission Date: 20200122
  Serious: Yes (Other)
  Sender: FDA-Public Use
  Company Number: CN-BAYER-2019-190880

PATIENT
  Age: 52 Year
  Sex: Female

DRUGS (2)
  1. REGORAFENIB. [Suspect]
     Active Substance: REGORAFENIB
     Indication: METASTATIC NEOPLASM
  2. SORAFENIB (RAF KINASE INHIBITOR) [Suspect]
     Active Substance: SORAFENIB
     Indication: METASTATIC NEOPLASM

REACTIONS (11)
  - Intestinal fistula [Recovering/Resolving]
  - Bone marrow failure [Recovering/Resolving]
  - Off label use [None]
  - Acute myocardial infarction [Recovering/Resolving]
  - Diarrhoea [Recovering/Resolving]
  - Intestinal obstruction [Recovering/Resolving]
  - Palmar-plantar erythrodysaesthesia syndrome [Recovering/Resolving]
  - Product use in unapproved indication [None]
  - Drug resistance [None]
  - Ascites [None]
  - Stomatitis [Recovering/Resolving]
